FAERS Safety Report 23729404 (Version 2)
Quarter: 2024Q2

REPORT INFORMATION
  Report Type: Spontaneous
  Country: US (occurrence: US)
  Receive Date: 20240410
  Receipt Date: 20240513
  Transmission Date: 20240715
  Serious: No
  Sender: FDA-Public Use
  Company Number: US-LUNDBECK-DKLU3075989

PATIENT
  Age: 37 Year
  Sex: Female

DRUGS (1)
  1. VYEPTI [Suspect]
     Active Substance: EPTINEZUMAB-JJMR
     Indication: Migraine
     Route: 041
     Dates: start: 20240318

REACTIONS (4)
  - Migraine [Unknown]
  - Nasal congestion [Unknown]
  - Somnolence [Unknown]
  - Brain fog [Unknown]

NARRATIVE: CASE EVENT DATE: 20240318
